FAERS Safety Report 10870156 (Version 2)
Quarter: 2015Q1

REPORT INFORMATION
  Report Type: Report from Study
  Country: DE (occurrence: DE)
  Receive Date: 20150226
  Receipt Date: 20150318
  Transmission Date: 20150721
  Serious: Yes (Death)
  Sender: FDA-Public Use
  Company Number: DE-BEH-2015049027

PATIENT
  Age: 74 Year
  Sex: Male
  Weight: 81 kg

DRUGS (8)
  1. PRIVIGEN [Suspect]
     Active Substance: HUMAN IMMUNOGLOBULIN G
     Dosage: INFUSION RATE MIN. 3 ML/MIN, MAX. 4 ML/MIN
     Route: 042
     Dates: start: 20141210, end: 20141210
  2. METOPROLOL 95 [Concomitant]
  3. BELOCZOK MITE [Concomitant]
  4. LEVODOPA 100 [Concomitant]
  5. PRIVIGEN [Suspect]
     Active Substance: HUMAN IMMUNOGLOBULIN G
     Dosage: INFUSION RATE MIN. 3 ML/MIN, MAX. 4 ML/MIN
     Route: 042
     Dates: start: 20140917, end: 20140917
  6. PRIVIGEN [Suspect]
     Active Substance: HUMAN IMMUNOGLOBULIN G
     Indication: IMMUNODEFICIENCY
     Dosage: INFUSION RATE MIN. 3 ML/MIN, MAX. 4 ML/MIN
     Route: 042
     Dates: start: 20141015, end: 20141015
  7. PRIVIGEN [Suspect]
     Active Substance: HUMAN IMMUNOGLOBULIN G
     Dosage: INFUSION RATE MIN. 3 ML/MIN, MAX. 4 ML/MIN
     Route: 042
     Dates: start: 20141112, end: 20141112
  8. ASPIRIN. [Concomitant]
     Active Substance: ASPIRIN

REACTIONS (1)
  - Death [Fatal]
